FAERS Safety Report 11708537 (Version 1)
Quarter: 2015Q4

REPORT INFORMATION
  Report Type: Spontaneous
  Country: US (occurrence: US)
  Receive Date: 20151104
  Receipt Date: 20151104
  Transmission Date: 20160304
  Serious: No
  Sender: FDA-Public Use
  Company Number: US-ELI_LILLY_AND_COMPANY-US201108003592

PATIENT
  Age: 65 Year
  Sex: Male

DRUGS (1)
  1. FORTEO [Suspect]
     Active Substance: TERIPARATIDE
     Indication: BONE DISORDER
     Dosage: UNK

REACTIONS (6)
  - Nausea [Unknown]
  - Rash [Unknown]
  - Chromaturia [Unknown]
  - Formication [Unknown]
  - Blood pressure diastolic increased [Unknown]
  - Feeling abnormal [Unknown]
